FAERS Safety Report 6269740-6 (Version None)
Quarter: 2009Q3

REPORT INFORMATION
  Report Type: 
  Country: None (occurrence: None)
  Receive Date: 20090716
  Receipt Date: 20090708
  Transmission Date: 20100115
  Serious: Yes (Other)
  Sender: FDA-Public Use
  Company Number: CH-WYE-G02209108

PATIENT
  Age: 37 Year
  Sex: Female
  Weight: 61.8 kg

DRUGS (2)
  1. EFFEXOR [Suspect]
     Indication: DEPRESSION
     Dosage: 75 MG DAILY UNTIL 2008, THEN TAPERED OFF DURING 3 WEEKS
  2. CITALOPRAM HYDROBROMIDE [Suspect]
     Dosage: SINCE THE 12TH WEEK OF PREGNANCY, DURING THE WHOLE PREGNANCY

REACTIONS (5)
  - AFFECT LABILITY [None]
  - ANAEMIA [None]
  - ARRESTED LABOUR [None]
  - DRUG EXPOSURE DURING PREGNANCY [None]
  - RETAINED PLACENTA OR MEMBRANES [None]
